FAERS Safety Report 14487561 (Version 3)
Quarter: 2022Q3

REPORT INFORMATION
  Report Type: Spontaneous
  Country: PH (occurrence: PH)
  Receive Date: 20180205
  Receipt Date: 20220908
  Transmission Date: 20221026
  Serious: Yes (Death, Hospitalization)
  Sender: FDA-Public Use
  Company Number: PH-JNJFOC-20180137577

PATIENT
  Age: 37 Year
  Sex: Female
  Weight: 40 kg

DRUGS (9)
  1. BEDAQUILINE [Suspect]
     Active Substance: BEDAQUILINE
     Indication: Pulmonary tuberculosis
     Dosage: TOTAL NUMBER OF DOSES DURING IP (SIC) WAS 12.?FOR 2 WEEKS
     Route: 048
     Dates: start: 20161114, end: 20161129
  2. BEDAQUILINE [Suspect]
     Active Substance: BEDAQUILINE
     Dosage: 2 TABLETS FOR 3 WEEKLY FOR MONTH, TOTAL NUMBER OF DOSES DURING IP (SIC) WAS 74.
     Route: 048
     Dates: start: 20161201, end: 20170516
  3. MOXIFLOXACIN [Suspect]
     Active Substance: MOXIFLOXACIN
     Indication: Pulmonary tuberculosis
     Route: 065
     Dates: start: 20161114, end: 20170516
  4. PASER [Suspect]
     Active Substance: AMINOSALICYLIC ACID
     Indication: Pulmonary tuberculosis
     Route: 065
     Dates: start: 20161114, end: 20170516
  5. ISONIAZID [Suspect]
     Active Substance: ISONIAZID
     Indication: Pulmonary tuberculosis
     Route: 048
     Dates: start: 20161114, end: 20170516
  6. LINEZOLID [Suspect]
     Active Substance: LINEZOLID
     Indication: Pulmonary tuberculosis
     Route: 048
     Dates: start: 20161114, end: 20170516
  7. CLOFAZIMINE [Suspect]
     Active Substance: CLOFAZIMINE
     Indication: Pulmonary tuberculosis
     Dosage: TOTAL NUMBER OF DOSES DURING IP (SIC) WAS 52.
     Route: 048
     Dates: start: 20161114, end: 20170209
  8. CLOFAZIMINE [Suspect]
     Active Substance: CLOFAZIMINE
     Route: 048
     Dates: start: 20170210
  9. CAPREOMYCIN [Suspect]
     Active Substance: CAPREOMYCIN
     Indication: Pulmonary tuberculosis
     Dosage: TOTAL NUMBER OF DOSES DURING IP (SIC) WAS 156.
     Route: 030
     Dates: start: 20161114, end: 20170608

REACTIONS (8)
  - Pulmonary tuberculosis [Fatal]
  - Lung abscess [Fatal]
  - Hypokalaemia [Recovered/Resolved]
  - Urinary tract infection [Unknown]
  - Paraesthesia [Recovered/Resolved]
  - Off label use [Unknown]
  - Intentional product use issue [Unknown]
  - Skin discolouration [Unknown]

NARRATIVE: CASE EVENT DATE: 20170509
